FAERS Safety Report 7744698-9 (Version None)
Quarter: 2011Q3

REPORT INFORMATION
  Report Type: 
  Country: None (occurrence: None)
  Receive Date: 20110912
  Receipt Date: 20110906
  Transmission Date: 20111222
  Serious: Yes (Other)
  Sender: FDA-Public Use
  Company Number: IL-TEVA-299276ISR

PATIENT
  Sex: Male
  Weight: 2.5 kg

DRUGS (1)
  1. GENTAMICIN [Suspect]
     Indication: URINARY TRACT INFECTION
     Dosage: 12 GRAM;
     Route: 042
     Dates: start: 20110827, end: 20110827

REACTIONS (2)
  - CYANOSIS [None]
  - APNOEA [None]
